FAERS Safety Report 8497007-4 (Version None)
Quarter: 2012Q3

REPORT INFORMATION
  Report Type: 
  Country: None (occurrence: None)
  Receive Date: 20120709
  Receipt Date: 20120604
  Transmission Date: 20120928
  Serious: No
  Sender: FDA-Public Use
  Company Number: US-AMGEN-USASP2012034831

PATIENT
  Age: 57 Year
  Sex: Male

DRUGS (1)
  1. ENBREL [Suspect]
     Indication: PSORIASIS
     Dosage: 50 MG, QWK
     Dates: start: 20120502

REACTIONS (6)
  - FATIGUE [None]
  - NAUSEA [None]
  - HYPERHIDROSIS [None]
  - CHILLS [None]
  - HOT FLUSH [None]
  - DIARRHOEA [None]
